FAERS Safety Report 4885604-4 (Version None)
Quarter: 2005Q4

REPORT INFORMATION
  Report Type: 
  Country: None (occurrence: None)
  Receive Date: 20051220
  Receipt Date: 20041130
  Transmission Date: 20060501
  Serious: Yes (Death)
  Sender: FDA-Public Use
  Company Number: HQWYE713801DEC04

PATIENT
  Age: 30 Year
  Sex: Male
  Weight: 86.26 kg

DRUGS (2)
  1. EFFEXOR XR [Suspect]
     Indication: MAJOR DEPRESSION
     Dosage: ^ 28 DAY SUPPLY OF EFFEXOR XR 150 MG/DAY-UNCLEAR EXACTLY HOW MUCH HE TOOK ^ (OVERDOSE AMOUNT), ORAL
     Route: 048
  2. ASPIRIN [Suspect]
     Dosage: ORAL
     Route: 048

REACTIONS (2)
  - COMPLETED SUICIDE [None]
  - INTENTIONAL OVERDOSE [None]
